FAERS Safety Report 8269396-7 (Version None)
Quarter: 2012Q2

REPORT INFORMATION
  Report Type: 
  Country: None (occurrence: None)
  Receive Date: 20120409
  Receipt Date: 20120112
  Transmission Date: 20120825
  Serious: Yes (Hospitalization)
  Sender: FDA-Public Use
  Company Number: US-ASTRAZENECA-2012SE02398

PATIENT
  Age: 79 Year
  Sex: Female

DRUGS (10)
  1. ACTOS [Concomitant]
  2. MIRAPEX [Concomitant]
  3. BRILINTA [Suspect]
     Route: 048
     Dates: start: 20111102
  4. DIAVAN [Concomitant]
  5. CINGULAR [Concomitant]
  6. PROTONIC [Concomitant]
  7. MOVIC [Concomitant]
  8. TRILIPIX [Concomitant]
     Dosage: 135 QD
  9. ASPIRIN [Concomitant]
     Dosage: 81 MG
  10. DEMADEX [Concomitant]

REACTIONS (3)
  - CONTUSION [None]
  - HAEMATOCHEZIA [None]
  - GASTROINTESTINAL HAEMORRHAGE [None]
